FAERS Safety Report 4302875-3 (Version None)
Quarter: 2004Q1

REPORT INFORMATION
  Report Type: 
  Country: None (occurrence: None)
  Receive Date: 20040220
  Receipt Date: 20031124
  Transmission Date: 20041129
  Serious: Yes (Hospitalization)
  Sender: FDA-Public Use
  Company Number: M03-341-202

PATIENT
  Age: 85 Year
  Sex: Female
  Weight: 54 kg

DRUGS (12)
  1. VELCADE [Suspect]
     Indication: MULTIPLE MYELOMA
     Dosage: 2 MG BIW; INTRAVENOUS (NOT OTHER WISE SPECIFIED)
     Route: 042
     Dates: start: 20030902
  2. DIGOXIN [Concomitant]
  3. DIPHENHYDRAMINE HCL [Concomitant]
  4. ENALAPRIL MALEATE [Concomitant]
  5. FUROSEMIDE [Concomitant]
  6. GABAPENTIN [Concomitant]
  7. METFORMIN [Concomitant]
  8. MULTI-VITAMINS [Concomitant]
  9. NITROFURANTOIN [Concomitant]
  10. REPAGLINIDE [Concomitant]
  11. SPIRONOLACTONE [Concomitant]
  12. VITAMIN B6 [Concomitant]

REACTIONS (15)
  - ASTHENIA [None]
  - BLOOD CHLORIDE DECREASED [None]
  - BLOOD CREATININE INCREASED [None]
  - BLOOD UREA INCREASED [None]
  - CARDIAC FAILURE CONGESTIVE [None]
  - CONDITION AGGRAVATED [None]
  - DIABETES MELLITUS [None]
  - DIFFICULTY IN WALKING [None]
  - HAEMATOCRIT DECREASED [None]
  - HAEMOGLOBIN DECREASED [None]
  - HYPOGLYCAEMIA [None]
  - INTERVERTEBRAL DISC PROTRUSION [None]
  - NAUSEA [None]
  - PLATELET COUNT DECREASED [None]
  - WHITE BLOOD CELL COUNT DECREASED [None]
